FAERS Safety Report 13029020 (Version 1)
Quarter: 2016Q4

REPORT INFORMATION
  Report Type: Spontaneous
  Country: US (occurrence: US)
  Receive Date: 20161214
  Receipt Date: 20161214
  Transmission Date: 20170207
  Serious: No
  Sender: FDA-Public Use
  Company Number: US-AUROBINDO-AUR-APU-2016-00605

PATIENT
  Sex: Female

DRUGS (1)
  1. MIRTAZAPINE TABLETS 15 MG [Suspect]
     Active Substance: MIRTAZAPINE
     Indication: PRODUCT USED FOR UNKNOWN INDICATION
     Dosage: 15 MG,ONE TABLET, DAILY
     Route: 065
     Dates: start: 20160119

REACTIONS (1)
  - Ocular hyperaemia [Unknown]
